FAERS Safety Report 13642284 (Version 3)
Quarter: 2018Q1

REPORT INFORMATION
  Report Type: Spontaneous
  Country: US (occurrence: US)
  Receive Date: 20170612
  Receipt Date: 20180105
  Transmission Date: 20180508
  Serious: Yes (Other)
  Sender: FDA-Public Use
  Company Number: US-VALIDUS PHARMACEUTICALS LLC-US-2017VAL000867

PATIENT
  Age: 40 Year
  Sex: Female

DRUGS (12)
  1. DAPSONE. [Suspect]
     Active Substance: DAPSONE
     Indication: ORAL LICHEN PLANUS
     Dosage: 100 MG, QD
     Route: 065
  2. LEFLUNOMIDE. [Suspect]
     Active Substance: LEFLUNOMIDE
     Indication: ORAL LICHEN PLANUS
     Dosage: 20 MG, QD
     Route: 065
  3. MYCOPHENOLATE MOFETIL. [Suspect]
     Active Substance: MYCOPHENOLATE MOFETIL
     Indication: ORAL LICHEN PLANUS
     Dosage: 2 G, QD
     Route: 065
  4. PREDNISONE. [Suspect]
     Active Substance: PREDNISONE
     Indication: ORAL LICHEN PLANUS
     Dosage: UNK UNK, QD
     Route: 065
  5. PENTOXIFYLLINE. [Suspect]
     Active Substance: PENTOXIFYLLINE
     Indication: ORAL LICHEN PLANUS
     Dosage: 400 MG, TID
     Route: 065
  6. MYCOPHENOLATE MOFETIL. [Suspect]
     Active Substance: MYCOPHENOLATE MOFETIL
     Dosage: UNK, QD
     Route: 065
  7. QUINACRINE [Suspect]
     Active Substance: QUINACRINE
     Indication: ORAL LICHEN PLANUS
     Dosage: 100 MG, QD
     Route: 065
  8. ACITRETIN. [Suspect]
     Active Substance: ACITRETIN
     Indication: ORAL LICHEN PLANUS
     Dosage: 20 MG, QD
     Route: 065
  9. METHOTREXATE. [Suspect]
     Active Substance: METHOTREXATE
     Indication: ORAL LICHEN PLANUS
     Dosage: 7.5 MG, WEEKLY
     Route: 065
  10. TACROLIMUS. [Concomitant]
     Active Substance: TACROLIMUS
     Indication: PRODUCT USED FOR UNKNOWN INDICATION
     Dosage: UNK
  11. HYDROXYCHLOROQUINE                 /00072603/ [Suspect]
     Active Substance: HYDROXYCHLOROQUINE SULFATE
     Indication: ORAL LICHEN PLANUS
     Dosage: 400 MG, QD
     Route: 065
  12. CHLOROQUINE. [Suspect]
     Active Substance: CHLOROQUINE
     Indication: ORAL LICHEN PLANUS
     Dosage: 250 MG, QD
     Route: 065

REACTIONS (3)
  - Drug ineffective [Unknown]
  - Leukopenia [Unknown]
  - Off label use [Unknown]
